FAERS Safety Report 10359600 (Version 1)
Quarter: 2014Q3

REPORT INFORMATION
  Report Type: Spontaneous
  Country: NO (occurrence: NO)
  Receive Date: 20140804
  Receipt Date: 20140804
  Transmission Date: 20150326
  Serious: Yes (Other)
  Sender: FDA-Public Use
  Company Number: NO-ASTELLAS-2014EU010292

PATIENT
  Age: 44 Year
  Sex: Female

DRUGS (2)
  1. PROTOPIC [Suspect]
     Active Substance: TACROLIMUS
     Indication: BLEPHARITIS
     Dosage: 0.1 %, TWICE DAILY
     Route: 061
     Dates: start: 20140205, end: 20140219
  2. PROTOPIC [Suspect]
     Active Substance: TACROLIMUS
     Dosage: 0.1 %, TWICE WEEKLY
     Route: 061
     Dates: end: 20140310

REACTIONS (2)
  - Rosacea [Not Recovered/Not Resolved]
  - Condition aggravated [Unknown]

NARRATIVE: CASE EVENT DATE: 20140216
